FAERS Safety Report 10159365 (Version 2)
Quarter: 2014Q3

REPORT INFORMATION
  Report Type: Spontaneous
  Country: US (occurrence: US)
  Receive Date: 20140508
  Receipt Date: 20140707
  Transmission Date: 20150326
  Serious: No
  Sender: FDA-Public Use
  Company Number: US-009507513-1405USA002606

PATIENT
  Age: 2 Year
  Sex: Female
  Weight: 13.15 kg

DRUGS (4)
  1. ZYRTEC [Concomitant]
     Active Substance: CETIRIZINE HYDROCHLORIDE
     Indication: HYPERSENSITIVITY
     Dosage: DAILY
  2. PULMICORT TURBUHALER [Concomitant]
     Active Substance: BUDESONIDE
     Indication: ASTHMA
     Dosage: IN THE MORNING AND AT NIGHT
  3. NASONEX [Suspect]
     Active Substance: MOMETASONE FUROATE
     Indication: PERENNIAL ALLERGY
     Dosage: ONE SPRAY INTO EACH NOSTRIL TWICE DAILY IN THE MORNING AND AT NIGHT
     Route: 045
     Dates: start: 20130626
  4. NASONEX [Suspect]
     Active Substance: MOMETASONE FUROATE
     Indication: SINUSITIS

REACTIONS (3)
  - Accidental exposure to product [Unknown]
  - Excessive eye blinking [Recovered/Resolved]
  - Lacrimation increased [Recovered/Resolved]

NARRATIVE: CASE EVENT DATE: 20140515
